FAERS Safety Report 4879904-1 (Version None)
Quarter: 2006Q1

REPORT INFORMATION
  Report Type: 
  Country: None (occurrence: None)
  Receive Date: 20060113
  Receipt Date: 20051011
  Transmission Date: 20060701
  Serious: Yes (Life-Threatening, Hospitalization, Other)
  Sender: FDA-Public Use
  Company Number: US-MERCK-0510USA06536

PATIENT
  Age: 62 Year
  Sex: Female

DRUGS (2)
  1. ZETIA [Suspect]
     Indication: HYPERLIPIDAEMIA
     Route: 048
     Dates: start: 20050601, end: 20050701
  2. SYNTHROID [Concomitant]
     Route: 065

REACTIONS (2)
  - GALLBLADDER DISORDER [None]
  - PANCREATITIS [None]
